FAERS Safety Report 18013941 (Version 1)
Quarter: 2020Q3

REPORT INFORMATION
  Report Type: Report from Study
  Country: US (occurrence: US)
  Receive Date: 20200713
  Receipt Date: 20200713
  Transmission Date: 20201103
  Serious: Yes (Disabling)
  Sender: FDA-Public Use
  Company Number: US-KARYOPHARM THERAPEUTICS, INC.-2020KPT000713

PATIENT

DRUGS (1)
  1. SELINEXOR [Suspect]
     Active Substance: SELINEXOR
     Indication: CHOROID PLEXUS CARCINOMA
     Dosage: 35 MG/M2, WEEKLY
     Route: 048
     Dates: start: 20200521, end: 20200611

REACTIONS (2)
  - Visual impairment [Not Recovered/Not Resolved]
  - Vision blurred [Not Recovered/Not Resolved]

NARRATIVE: CASE EVENT DATE: 20200617
